FAERS Safety Report 24583938 (Version 1)
Quarter: 2024Q4

REPORT INFORMATION
  Report Type: Spontaneous
  Country: DE (occurrence: DE)
  Receive Date: 20241106
  Receipt Date: 20241106
  Transmission Date: 20250114
  Serious: Yes (Hospitalization)
  Sender: CHEPLAPHARM
  Company Number: DE-CHEPLA-2024013980

PATIENT
  Age: 2 Decade
  Sex: Male

DRUGS (1)
  1. OLANZAPINE PAMOATE [Suspect]
     Active Substance: OLANZAPINE PAMOATE
     Indication: Product used for unknown indication

REACTIONS (5)
  - Disorientation [Unknown]
  - Pain in extremity [Unknown]
  - Restlessness [Unknown]
  - Pyrexia [Unknown]
  - Cardiovascular disorder [Unknown]
